FAERS Safety Report 6956938-4 (Version None)
Quarter: 2010Q3

REPORT INFORMATION
  Report Type: 
  Country: None (occurrence: None)
  Receive Date: 20100826
  Receipt Date: 20100812
  Transmission Date: 20110219
  Serious: Yes (Congenital Anomaly)
  Sender: FDA-Public Use
  Company Number: AUR-APU-2010-01329

PATIENT

DRUGS (4)
  1. RETROVIR [Suspect]
     Dosage: TRANSPLACENTAL
     Route: 064
  2. SUSTIVA [Suspect]
     Dosage: TRANSPLACENTAL
     Route: 064
  3. EPIVIR [Suspect]
     Dosage: TRANSPLACENTAL
     Route: 064
  4. VIRACEPT [Suspect]
     Dosage: TRANSPLACENTAL
     Route: 064

REACTIONS (3)
  - ATRIAL SEPTAL DEFECT [None]
  - CONGENITAL ANOMALY [None]
  - MATERNAL DRUGS AFFECTING FOETUS [None]
